FAERS Safety Report 6940975-X (Version None)
Quarter: 2010Q3

REPORT INFORMATION
  Report Type: 
  Country: None (occurrence: None)
  Receive Date: 20100825
  Receipt Date: 20100818
  Transmission Date: 20110219
  Serious: Yes (Hospitalization)
  Sender: FDA-Public Use
  Company Number: A0876507A

PATIENT
  Age: 84 Year
  Sex: Female

DRUGS (14)
  1. ADVAIR DISKUS 100/50 [Suspect]
     Indication: CHRONIC OBSTRUCTIVE PULMONARY DISEASE
     Dosage: 1PUFF TWICE PER DAY
     Route: 055
     Dates: start: 19800101
  2. SYNTHROID [Concomitant]
  3. CYTOMEL [Concomitant]
  4. CELEXA [Concomitant]
  5. EXFORGE [Concomitant]
  6. CARDIZEM [Concomitant]
  7. AGGRENOX [Concomitant]
  8. VITAMIN-MINERAL COMPOUND TAB [Concomitant]
  9. PROTINEX [Concomitant]
  10. KLONOPIN [Concomitant]
  11. SIMVASTATIN [Concomitant]
  12. FISH OIL [Concomitant]
  13. MULTI-VITAMIN [Concomitant]
  14. FLORASTOR [Concomitant]

REACTIONS (8)
  - ANAEMIA [None]
  - CANDIDIASIS [None]
  - CHRONIC OBSTRUCTIVE PULMONARY DISEASE [None]
  - DYSPEPSIA [None]
  - FATIGUE [None]
  - GASTROINTESTINAL HAEMORRHAGE [None]
  - HAEMORRHAGE [None]
  - HEADACHE [None]
